FAERS Safety Report 9772238 (Version 2)
Quarter: 2013Q4

REPORT INFORMATION
  Report Type: Spontaneous
  Country: US (occurrence: DE)
  Receive Date: 20131219
  Receipt Date: 20131231
  Transmission Date: 20140711
  Serious: Yes (Other)
  Sender: FDA-Public Use
  Company Number: DE-PFIZER INC-2013358902

PATIENT
  Age: 68 Year
  Sex: Female

DRUGS (4)
  1. AZULFIDINE [Suspect]
     Indication: SJOGREN^S SYNDROME
     Dosage: 2 G, DAILY
  2. AZULFIDINE [Suspect]
     Indication: RHEUMATOID ARTHRITIS
  3. PREDNISOLONE [Concomitant]
     Indication: SJOGREN^S SYNDROME
     Dosage: 5 AND 15 MG, DAILY
  4. PREDNISOLONE [Concomitant]
     Indication: RHEUMATOID ARTHRITIS

REACTIONS (3)
  - Eosinophilic pneumonia [Recovered/Resolved]
  - Pulmonary granuloma [Recovered/Resolved]
  - Granuloma skin [Recovered/Resolved]
